FAERS Safety Report 11173339 (Version 1)
Quarter: 2015Q2

REPORT INFORMATION
  Report Type: Spontaneous
  Country: JP (occurrence: JP)
  Receive Date: 20150608
  Receipt Date: 20150608
  Transmission Date: 20150821
  Serious: Yes (Hospitalization, Other)
  Sender: FDA-Public Use
  Company Number: JP-MYLANLABS-2015M1018507

PATIENT

DRUGS (2)
  1. ZONISAMIDE. [Suspect]
     Active Substance: ZONISAMIDE
     Indication: SUBARACHNOID HAEMORRHAGE
     Dosage: ADMINISTERED FOR 2 MONTHS, FOLLOWED BY A WASHOUT PERIOD OF 4 MONTHS; RE-ADMINISTERED
     Route: 065
  2. ZONISAMIDE. [Suspect]
     Active Substance: ZONISAMIDE
     Indication: OFF LABEL USE

REACTIONS (3)
  - Human herpesvirus 6 infection [Recovering/Resolving]
  - Drug reaction with eosinophilia and systemic symptoms [Recovering/Resolving]
  - Eosinophilic pneumonia [Recovering/Resolving]
